FAERS Safety Report 8866338 (Version 1)
Quarter: 2012Q4

REPORT INFORMATION
  Report Type: Report from Study
  Country: BR (occurrence: BR)
  Receive Date: 20121025
  Receipt Date: 20121025
  Transmission Date: 20130627
  Serious: Yes (Other)
  Sender: FDA-Public Use
  Company Number: BR-ROCHE-1148813

PATIENT
  Age: 45 Year
  Sex: Female
  Weight: 56 kg

DRUGS (6)
  1. BEVACIZUMAB [Suspect]
     Indication: COLORECTAL CANCER
     Route: 042
     Dates: start: 20111226, end: 20121023
  2. IRINOTECAN [Suspect]
     Indication: COLORECTAL CANCER
     Dosage: 12 cycles
     Route: 065
     Dates: start: 20111226, end: 20121023
  3. FLUOROURACIL [Suspect]
     Indication: COLORECTAL CANCER
     Route: 065
     Dates: end: 20121023
  4. FLUOROURACIL [Suspect]
     Route: 065
  5. OXALIPLATIN [Concomitant]
     Route: 065
     Dates: start: 20110228
  6. LEUCOVORIN [Concomitant]
     Route: 065

REACTIONS (1)
  - Disease progression [Unknown]
